FAERS Safety Report 12790530 (Version 4)
Quarter: 2017Q1

REPORT INFORMATION
  Report Type: Report from Study
  Country: US (occurrence: US)
  Receive Date: 20160929
  Receipt Date: 20170109
  Transmission Date: 20170428
  Serious: Yes (Hospitalization)
  Sender: FDA-Public Use
  Company Number: US-ACTELION-A-NJ2016-139252

PATIENT
  Age: 72 Year
  Sex: Female

DRUGS (1)
  1. OPSUMIT [Suspect]
     Active Substance: MACITENTAN
     Indication: PULMONARY ARTERIAL HYPERTENSION
     Dosage: 10 MG, QD
     Route: 048
     Dates: start: 20160622, end: 20160714

REACTIONS (12)
  - Hypoxia [Recovered/Resolved with Sequelae]
  - Dyspnoea [Recovered/Resolved with Sequelae]
  - Dizziness [Unknown]
  - Cardiac failure congestive [Recovered/Resolved with Sequelae]
  - Oxygen saturation decreased [Recovered/Resolved with Sequelae]
  - Condition aggravated [Recovered/Resolved with Sequelae]
  - Hyponatraemia [Unknown]
  - Unevaluable event [Unknown]
  - Pulmonary oedema [Recovered/Resolved with Sequelae]
  - Muscle spasms [Unknown]
  - Left ventricular dysfunction [Recovered/Resolved with Sequelae]
  - Pulmonary arterial hypertension [Recovered/Resolved with Sequelae]

NARRATIVE: CASE EVENT DATE: 20160705
